FAERS Safety Report 12272008 (Version 1)
Quarter: 2016Q2

REPORT INFORMATION
  Report Type: Spontaneous
  Country: US (occurrence: US)
  Receive Date: 20160415
  Receipt Date: 20160415
  Transmission Date: 20160815
  Serious: No
  Sender: FDA-Public Use
  Company Number: US-FERRINGPH-2015FE02498

PATIENT
  Age: 62 Year
  Sex: Male
  Weight: 88.44 kg

DRUGS (4)
  1. FIRMAGON [Suspect]
     Active Substance: DEGARELIX ACETATE
     Dosage: 240 MG, LOADING DOSE, 1ST SHOT SUBCUTANEOUS, 2ND SHOT INTRAMUSCULAR
     Route: 058
     Dates: start: 20150520
  2. TAXOTERE [Concomitant]
     Active Substance: DOCETAXEL
  3. GRANIX [Concomitant]
     Active Substance: TBO-FILGRASTIM
  4. FIRMAGON [Suspect]
     Active Substance: DEGARELIX ACETATE
     Indication: PROSTATE CANCER
     Dosage: MAINTENANCE DOSE, MONTHLY
     Route: 058
     Dates: start: 201506

REACTIONS (3)
  - Injection site pain [Not Recovered/Not Resolved]
  - Injection site swelling [Not Recovered/Not Resolved]
  - Incorrect route of drug administration [Not Recovered/Not Resolved]

NARRATIVE: CASE EVENT DATE: 20150520
